FAERS Safety Report 19659517 (Version 1)
Quarter: 2021Q3

REPORT INFORMATION
  Report Type: Spontaneous
  Country: US (occurrence: US)
  Receive Date: 20210805
  Receipt Date: 20210805
  Transmission Date: 20211014
  Serious: Yes (Hospitalization, Other)
  Sender: FDA-Public Use
  Company Number: US-AMGEN-USASP2021116445

PATIENT
  Age: 20 Year
  Sex: Male
  Weight: 69.6 kg

DRUGS (4)
  1. INOTUZUMAB OZOGAMICIN [Suspect]
     Active Substance: INOTUZUMAB OZOGAMICIN
     Indication: ACUTE LYMPHOCYTIC LEUKAEMIA
     Dosage: 0.3 MILLIGRAM/SQ. METER, CYCLICAL
     Route: 042
     Dates: start: 20210528
  2. BLINCYTO [Suspect]
     Active Substance: BLINATUMOMAB
     Indication: PRODUCT USED FOR UNKNOWN INDICATION
     Dosage: UNK
     Route: 042
  3. BLINCYTO [Suspect]
     Active Substance: BLINATUMOMAB
     Dosage: 9 MICROGRAM, QD
     Route: 042
     Dates: start: 20210630
  4. BLINCYTO [Suspect]
     Active Substance: BLINATUMOMAB
     Dosage: 28 MICROGRAM, QD
     Route: 042
     Dates: start: 20210707

REACTIONS (4)
  - Confusional state [Recovered/Resolved]
  - Myoclonus [Recovered/Resolved]
  - Tremor [Recovered/Resolved]
  - Mental status changes [Recovered/Resolved]

NARRATIVE: CASE EVENT DATE: 20210626
